FAERS Safety Report 5205314-3 (Version None)
Quarter: 2006Q4

REPORT INFORMATION
  Report Type: 
  Country: None (occurrence: None)
  Receive Date: 20061026
  Receipt Date: 20060919
  Transmission Date: 20070319
  Serious: Yes (Other)
  Sender: FDA-Public Use
  Company Number: 2006099291

PATIENT
  Age: 19 Year
  Sex: Female
  Weight: 50 kg

DRUGS (7)
  1. LYRICA [Suspect]
     Indication: COMPLEX PARTIAL SEIZURES
     Dosage: 300 MG (150 MG 2 IN 1 D)
     Dates: start: 20051201, end: 20060405
  2. LYRICA [Suspect]
     Indication: CONVULSION
     Dosage: 300 MG (150 MG 2 IN 1 D)
     Dates: start: 20051201, end: 20060405
  3. ALL OTHER THERAPEUTIC PRODUCTS (ALL OTHER THERAPEUTIC PRODUCTS) [Suspect]
  4. TRILEPTAL [Concomitant]
  5. KEPPRA [Concomitant]
  6. LAMICTAL [Concomitant]
  7. PREDNISONE TAB [Concomitant]

REACTIONS (5)
  - EYE SWELLING [None]
  - RASH [None]
  - STAPHYLOCOCCAL INFECTION [None]
  - URTICARIA [None]
  - VISION BLURRED [None]
